FAERS Safety Report 5831499-1 (Version None)
Quarter: 2008Q3

REPORT INFORMATION
  Report Type: 
  Country: None (occurrence: None)
  Receive Date: 20080730
  Receipt Date: 20080721
  Transmission Date: 20090109
  Serious: Yes (Death)
  Sender: FDA-Public Use
  Company Number: 163-21880-08011644

PATIENT
  Age: 55 Year
  Sex: Male
  Weight: 101.0614 kg

DRUGS (4)
  1. REVLIMID [Suspect]
     Indication: MYELOFIBROSIS
     Dosage: 5 MG, 1 IN 1 D, ORAL
     Route: 048
     Dates: start: 20071119, end: 20071204
  2. ADVIL [Concomitant]
  3. CLARITIN [Concomitant]
  4. TRANSFUSION (BLOOD CELLS, PACKED HUMAN) [Concomitant]

REACTIONS (6)
  - BONE MARROW FAILURE [None]
  - CONSTIPATION [None]
  - DISEASE PROGRESSION [None]
  - FATIGUE [None]
  - IRON OVERLOAD [None]
  - RENAL IMPAIRMENT [None]
